FAERS Safety Report 9407162 (Version 1)
Quarter: 2013Q3

REPORT INFORMATION
  Report Type: Spontaneous
  Country: US (occurrence: US)
  Receive Date: 20130718
  Receipt Date: 20130718
  Transmission Date: 20140515
  Serious: Yes (Hospitalization)
  Sender: FDA-Public Use
  Company Number: US-ELI_LILLY_AND_COMPANY-US201307003489

PATIENT
  Sex: Female

DRUGS (4)
  1. FORTEO [Suspect]
     Indication: OSTEOPOROSIS
     Dosage: UNK, QD
     Dates: start: 201302
  2. PROLIA [Concomitant]
     Dosage: ONCE EVERY 6 MONTHS
  3. CALTRATE                           /00751519/ [Concomitant]
  4. VITAMIN D                          /00107901/ [Concomitant]

REACTIONS (2)
  - Urinary tract infection [Unknown]
  - Nausea [Unknown]
